FAERS Safety Report 14955458 (Version 5)
Quarter: 2020Q4

REPORT INFORMATION
  Report Type: Spontaneous
  Country: US (occurrence: US)
  Receive Date: 20180531
  Receipt Date: 20201215
  Transmission Date: 20210113
  Serious: No
  Sender: FDA-Public Use
  Company Number: US-BIOGEN-2018BI00587464

PATIENT
  Age: 38 Year
  Sex: Female

DRUGS (2)
  1. TECFIDERA [Suspect]
     Active Substance: DIMETHYL FUMARATE
     Indication: MULTIPLE SCLEROSIS
     Dosage: MAINTENANCE DOSE
     Route: 050
     Dates: end: 20201113
  2. TECFIDERA [Suspect]
     Active Substance: DIMETHYL FUMARATE
     Route: 048

REACTIONS (8)
  - Poor quality sleep [Unknown]
  - Abdominal discomfort [Unknown]
  - Flushing [Unknown]
  - Magnetic resonance imaging abnormal [Unknown]
  - Oesophageal dilatation [Recovered/Resolved]
  - Rash [Not Recovered/Not Resolved]
  - Diarrhoea [Unknown]
  - Fatigue [Unknown]

NARRATIVE: CASE EVENT DATE: 201805
